FAERS Safety Report 18365730 (Version 3)
Quarter: 2020Q4

REPORT INFORMATION
  Report Type: Spontaneous
  Country: JP (occurrence: JP)
  Receive Date: 20201009
  Receipt Date: 20201016
  Transmission Date: 20210114
  Serious: Yes (Hospitalization)
  Sender: FDA-Public Use
  Company Number: JP-UCBSA-2020039022

PATIENT
  Age: 68 Year
  Sex: Male

DRUGS (4)
  1. VIMPAT [Suspect]
     Active Substance: LACOSAMIDE
     Dosage: 200 MILLIGRAM, 2X/DAY (BID)
     Route: 048
     Dates: start: 20200915
  2. VIMPAT [Suspect]
     Active Substance: LACOSAMIDE
     Indication: EPILEPSY
     Dosage: 200 MG DAILY
     Route: 048
     Dates: end: 20200910
  3. E KEPPRA [Suspect]
     Active Substance: LEVETIRACETAM
     Indication: EPILEPSY
     Dosage: 1500 MILLIGRAM, 2X/DAY (BID)
     Route: 048
  4. VIMPAT [Suspect]
     Active Substance: LACOSAMIDE
     Dosage: 300 MG DAILY
     Route: 048
     Dates: start: 20200911, end: 20200914

REACTIONS (3)
  - Drug eruption [Recovered/Resolved]
  - Rash [Recovered/Resolved]
  - Epilepsy [Recovered/Resolved]

NARRATIVE: CASE EVENT DATE: 20200910
